FAERS Safety Report 15089997 (Version 2)
Quarter: 2018Q3

REPORT INFORMATION
  Report Type: Spontaneous
  Country: US (occurrence: US)
  Receive Date: 20180629
  Receipt Date: 20180809
  Transmission Date: 20181010
  Serious: No
  Sender: FDA-Public Use
  Company Number: US-ASTRAZENECA-2018SE72002

PATIENT
  Age: 26638 Day
  Sex: Male
  Weight: 105.7 kg

DRUGS (3)
  1. LANTUS [Concomitant]
     Active Substance: INSULIN GLARGINE
     Indication: TYPE 2 DIABETES MELLITUS
     Route: 058
  2. BYDUREON BCISE [Suspect]
     Active Substance: EXENATIDE
     Indication: INSULIN-REQUIRING TYPE 2 DIABETES MELLITUS
     Route: 058
     Dates: start: 20180428
  3. HUMALOG [Concomitant]
     Active Substance: INSULIN LISPRO
     Indication: TYPE 2 DIABETES MELLITUS
     Dosage: 15 IU EVERY DAY WITH MEALS
     Route: 058

REACTIONS (15)
  - Injection site mass [Not Recovered/Not Resolved]
  - Toothache [Not Recovered/Not Resolved]
  - Blood count abnormal [Not Recovered/Not Resolved]
  - Full blood count increased [Unknown]
  - Product use issue [Unknown]
  - Device leakage [Unknown]
  - Stress [Unknown]
  - Injection site rash [Unknown]
  - Intentional device misuse [Unknown]
  - Hypoaesthesia [Recovered/Resolved]
  - Mouth swelling [Not Recovered/Not Resolved]
  - Weight increased [Recovered/Resolved]
  - Injection site pain [Unknown]
  - Injection site swelling [Not Recovered/Not Resolved]
  - Malaise [Not Recovered/Not Resolved]

NARRATIVE: CASE EVENT DATE: 20180428
